FAERS Safety Report 12011089 (Version 3)
Quarter: 2016Q3

REPORT INFORMATION
  Report Type: Spontaneous
  Country: US (occurrence: US)
  Receive Date: 20160205
  Receipt Date: 20160815
  Transmission Date: 20161109
  Serious: Yes (Other)
  Sender: FDA-Public Use
  Company Number: US-BAYER-2016-021258

PATIENT
  Sex: Female
  Weight: 113.38 kg

DRUGS (3)
  1. CIPRO [Suspect]
     Active Substance: CIPROFLOXACIN HYDROCHLORIDE
     Dosage: UNK
     Dates: start: 20100401
  2. LEVAQUIN [Suspect]
     Active Substance: LEVOFLOXACIN
     Dosage: UNK
  3. AVELOX [Suspect]
     Active Substance: MOXIFLOXACIN HYDROCHLORIDE
     Dosage: UNK

REACTIONS (8)
  - Neuropathy peripheral [None]
  - Skin injury [None]
  - Mental disorder [None]
  - Musculoskeletal injury [None]
  - Nervous system disorder [None]
  - Pain [None]
  - Cardiovascular disorder [None]
  - Depression [None]

NARRATIVE: CASE EVENT DATE: 2010
